FAERS Safety Report 12651582 (Version 1)
Quarter: 2016Q3

REPORT INFORMATION
  Report Type: Spontaneous
  Country: US (occurrence: US)
  Receive Date: 20160815
  Receipt Date: 20160815
  Transmission Date: 20161109
  Serious: Yes (Other)
  Sender: FDA-Public Use
  Company Number: US-PFIZER INC-2016381618

PATIENT
  Age: 9 Year
  Sex: Female
  Weight: 118 kg

DRUGS (2)
  1. LUPRON [Concomitant]
     Active Substance: LEUPROLIDE ACETATE
     Indication: REPRODUCTIVE TRACT DISORDER
     Dosage: INJECTION, WEEKLY
     Dates: end: 2011
  2. GENOTROPIN [Suspect]
     Active Substance: SOMATROPIN
     Indication: GROWTH RETARDATION
     Dosage: 3 CLICKS PER INJECTION, TWO OR THREE TIMES EACH DAY
     Dates: end: 2011

REACTIONS (1)
  - Pituitary tumour [Recovered/Resolved with Sequelae]
